FAERS Safety Report 4976671-8 (Version None)
Quarter: 2006Q2

REPORT INFORMATION
  Report Type: 
  Country: None (occurrence: None)
  Receive Date: 20060419
  Receipt Date: 20050324
  Transmission Date: 20061013
  Serious: Yes (Death, Hospitalization, Disabling)
  Sender: FDA-Public Use
  Company Number: US-MERCK-0503USA04543

PATIENT
  Age: 53 Year
  Sex: Male
  Weight: 100 kg

DRUGS (12)
  1. VIOXX [Suspect]
     Indication: PAIN
     Route: 048
     Dates: start: 20000101, end: 20020101
  2. NORVASC [Concomitant]
     Route: 065
  3. LASIX [Concomitant]
     Route: 065
  4. TRICOR [Concomitant]
     Route: 065
  5. LIPITOR [Concomitant]
     Route: 065
  6. ASPIRIN [Concomitant]
     Route: 065
  7. COUMADIN [Concomitant]
     Route: 065
  8. ALDACTONE [Concomitant]
     Route: 065
  9. COZAAR [Concomitant]
     Route: 065
  10. DIGOXIN [Concomitant]
     Route: 065
  11. GLIPIZIDE [Concomitant]
     Route: 065
  12. SYNTHROID [Concomitant]
     Route: 065

REACTIONS (16)
  - ANAEMIA [None]
  - ATRIAL FIBRILLATION [None]
  - CARDIAC ARREST [None]
  - CEREBROVASCULAR ACCIDENT [None]
  - CHRONIC RESPIRATORY FAILURE [None]
  - COMA [None]
  - DEEP VEIN THROMBOSIS [None]
  - ESCHERICHIA URINARY TRACT INFECTION [None]
  - FALL [None]
  - HYPONATRAEMIA [None]
  - LEUKOCYTOSIS [None]
  - PLEURAL EFFUSION [None]
  - PNEUMONIA STAPHYLOCOCCAL [None]
  - SEPSIS [None]
  - SUBDURAL HAEMATOMA [None]
  - URINARY TRACT INFECTION PSEUDOMONAL [None]
